FAERS Safety Report 7337026 (Version 16)
Quarter: 2012Q4

REPORT INFORMATION
  Report Type: 
  Country: CA (occurrence: CA)
  Receive Date: 20100330
  Receipt Date: 20121109
  Transmission Date: 20130627
  Serious: Yes (Hospitalization, Other)
  Sender: FDA-Public Use
  Company Number: PHHY2009CA17733

PATIENT
  Age: 19 Year
  Sex: Female

DRUGS (4)
  1. SANDOSTATIN LAR [Suspect]
     Indication: ALBRIGHT^S DISEASE
     Dosage: 20 mg, Once a month
     Route: 030
     Dates: start: 20070330
  2. SANDOSTATIN LAR [Suspect]
     Dosage: 20 mg, every 4 weeks
     Route: 030
  3. SANDOSTATIN LAR [Suspect]
     Dosage: 10 mg, every 4 weeks
     Route: 030
  4. HEPATITIS A VACCINE W/HEPATITIS B VACCINE [Concomitant]
     Indication: IMMUNISATION
     Dates: start: 20120713, end: 20120713

REACTIONS (36)
  - Hypoaesthesia oral [Unknown]
  - Hypoaesthesia [Unknown]
  - Paraesthesia [Unknown]
  - Scoliosis [Unknown]
  - Cardiac disorder [Unknown]
  - Palpitations [Unknown]
  - Ear disorder [Unknown]
  - Arrhythmia [Unknown]
  - Heart rate irregular [Unknown]
  - Heart rate increased [Unknown]
  - Abdominal discomfort [Unknown]
  - Constipation [Unknown]
  - Contusion [Unknown]
  - Anxiety [Unknown]
  - Malaise [Unknown]
  - Asthenia [Unknown]
  - Arthralgia [Recovered/Resolved]
  - Disturbance in attention [Unknown]
  - Menstruation irregular [Unknown]
  - Back pain [Recovering/Resolving]
  - Musculoskeletal stiffness [Unknown]
  - Pain in extremity [Unknown]
  - Gait disturbance [Unknown]
  - Mobility decreased [Unknown]
  - Oropharyngeal pain [Recovered/Resolved]
  - Dysgeusia [Unknown]
  - Somnolence [Unknown]
  - Vision blurred [Unknown]
  - Myalgia [Unknown]
  - Dizziness [Unknown]
  - Headache [Recovering/Resolving]
  - Nausea [Recovered/Resolved]
  - Fatigue [Unknown]
  - Injection site pain [Unknown]
  - Abdominal symptom [Unknown]
  - Abdominal distension [Unknown]
